FAERS Safety Report 9948391 (Version 2)
Quarter: 2014Q2

REPORT INFORMATION
  Report Type: Spontaneous
  Country: US (occurrence: None)
  Receive Date: 20140122
  Receipt Date: 20140418
  Transmission Date: 20141212
  Serious: Yes (Other)
  Sender: FDA-Public Use
  Company Number: PHEH2013US023474

PATIENT
  Sex: Female

DRUGS (1)
  1. TOBI PODHALER [Suspect]

REACTIONS (4)
  - Pulmonary function test decreased [None]
  - Chest discomfort [None]
  - Cough [None]
  - Oxygen saturation decreased [None]
